FAERS Safety Report 7389511-7 (Version None)
Quarter: 2011Q2

REPORT INFORMATION
  Report Type: 
  Country: None (occurrence: None)
  Receive Date: 20110401
  Receipt Date: 20110322
  Transmission Date: 20111010
  Serious: Yes (Other)
  Sender: FDA-Public Use
  Company Number: PHHY2011FR06078

PATIENT
  Sex: Male
  Weight: 1.92 kg

DRUGS (4)
  1. UVESTEROL [Concomitant]
  2. PROGLYCEM [Suspect]
     Indication: HYPERINSULINISM
     Dosage: 15 MG/KG, DAILY
     Dates: start: 20101209
  3. PEDIAVEN [Concomitant]
  4. SANDOSTATIN [Suspect]
     Indication: HYPERINSULINISM
     Dosage: 0.02 MG/KG, DAILY
     Route: 058
     Dates: start: 20101212, end: 20110115

REACTIONS (6)
  - OXYGEN SATURATION DECREASED [None]
  - MALABSORPTION [None]
  - MALAISE [None]
  - HYPOCALCAEMIA [None]
  - GASTROOESOPHAGEAL REFLUX DISEASE [None]
  - BRADYCARDIA [None]
